FAERS Safety Report 7516451-2 (Version None)
Quarter: 2011Q2

REPORT INFORMATION
  Report Type: 
  Country: None (occurrence: None)
  Receive Date: 20110601
  Receipt Date: 20110517
  Transmission Date: 20111010
  Serious: Yes (Hospitalization)
  Sender: FDA-Public Use
  Company Number: A0776669A

PATIENT
  Age: 68 Year
  Sex: Male
  Weight: 103.6 kg

DRUGS (11)
  1. PROSCAR [Concomitant]
  2. ASCORBIC ACID [Concomitant]
  3. ASTELIN [Concomitant]
  4. FLOMAX [Concomitant]
  5. AVANDIA [Suspect]
     Dosage: 4MG TWICE PER DAY
     Route: 048
     Dates: start: 20050517, end: 20070601
  6. COMBIVENT [Concomitant]
  7. ASPIRIN [Concomitant]
  8. VITAMIN E [Concomitant]
  9. CALCIUM CARBONATE [Concomitant]
  10. MAGNESIUM SULFATE [Concomitant]
  11. LIPITOR [Concomitant]

REACTIONS (1)
  - MYOCARDIAL INFARCTION [None]
